FAERS Safety Report 7414960-8 (Version None)
Quarter: 2011Q2

REPORT INFORMATION
  Report Type: 
  Country: None (occurrence: None)
  Receive Date: 20110414
  Receipt Date: 20110412
  Transmission Date: 20111010
  Serious: Yes (Hospitalization)
  Sender: FDA-Public Use
  Company Number: US-PFIZER INC-2011067286

PATIENT
  Sex: Female

DRUGS (8)
  1. SUTENT [Suspect]
     Indication: FIBROUS HISTIOCYTOMA
     Dosage: 50 MG, 1X/DAY
     Route: 048
     Dates: start: 20110214, end: 20110314
  2. COENZYME Q10 [Concomitant]
     Indication: IMMUNE ENHANCEMENT THERAPY
     Dosage: 200 MG, 1X/DAY
     Route: 048
     Dates: start: 20100630
  3. ATENOLOL [Concomitant]
     Dosage: 50 MG, 1X/DAY
  4. SUTENT [Suspect]
     Indication: METASTASES TO LUNG
  5. LOVAZA [Concomitant]
     Indication: CHEMOTHERAPY
     Dosage: UNK
     Dates: start: 20100630
  6. K-DUR [Concomitant]
     Dosage: 20 MG, 1 TAB, 1X/DAY
  7. GLYBURIDE [Concomitant]
     Indication: DIABETES MELLITUS
     Dosage: 5MG/500, 1TAB, 1X/DAY
  8. VITAMIN D [Concomitant]
     Indication: IMMUNE ENHANCEMENT THERAPY
     Dosage: UNK
     Dates: start: 20110121

REACTIONS (3)
  - OROPHARYNGEAL PAIN [None]
  - INFLUENZA LIKE ILLNESS [None]
  - DYSPNOEA EXERTIONAL [None]
